FAERS Safety Report 7050303-X (Version None)
Quarter: 2010Q4

REPORT INFORMATION
  Report Type: 
  Country: None (occurrence: None)
  Receive Date: 20101018
  Receipt Date: 20101006
  Transmission Date: 20110411
  Serious: Yes (Hospitalization)
  Sender: FDA-Public Use
  Company Number: GXKR2010FR11346

PATIENT
  Age: 56 Year
  Sex: Female

DRUGS (17)
  1. RIFAMPICIN (NGX) [Suspect]
     Indication: PEPTOSTREPTOCOCCUS INFECTION
     Dosage: 600 MG, BID
     Route: 041
     Dates: start: 20100715, end: 20100810
  2. RIFAMPICIN (NGX) [Suspect]
     Dosage: 600 MG, /DAY
     Route: 048
     Dates: start: 20100810, end: 20100819
  3. DRUG THERAPY NOS [Suspect]
     Indication: PROPHYLAXIS AGAINST TRANSPLANT REJECTION
     Dosage: 5 MG, BID
     Route: 048
     Dates: start: 20100129
  4. ALUMINIUM MAGNESIUM SILICATE [Concomitant]
     Dosage: UNK
     Route: 048
     Dates: start: 20100717
  5. CORTANCYL [Concomitant]
     Indication: TRANSPLANT REJECTION
     Dosage: 5 MG, QD
     Route: 065
     Dates: start: 20081030, end: 20100903
  6. TAREG [Concomitant]
     Indication: HYPERTENSION
     Dosage: 40 MG, QD
     Route: 065
     Dates: start: 20100814, end: 20100816
  7. TAVANIC [Concomitant]
     Indication: INFECTION
     Dosage: 500 MG, QD
     Route: 065
     Dates: start: 20100815
  8. ZANIDIP [Concomitant]
     Indication: HYPERTENSION
     Dosage: 10 MG, QD
     Route: 048
     Dates: start: 20100816
  9. ACETAMINOPHEN [Concomitant]
     Indication: PAIN
     Dosage: 1 G, TID
     Route: 048
     Dates: start: 20100126
  10. ALPRAZOLAM [Concomitant]
     Indication: ANXIETY
     Dosage: 0.25 MG, QD
     Route: 065
     Dates: start: 20100715
  11. ALPRAZOLAM [Concomitant]
     Dosage: 0.125 MG, BID
     Route: 065
     Dates: start: 20100715, end: 20100920
  12. CALCIPARINE [Concomitant]
     Indication: PROPHYLAXIS
     Dosage: 0.3 ML, TID
     Route: 065
     Dates: start: 20100704, end: 20100826
  13. AMOXICILLIN TRIHYDRATE [Concomitant]
     Indication: INFECTION
     Dosage: 2 G, TID
     Route: 042
     Dates: start: 20100715, end: 20100810
  14. AMOXICILLIN TRIHYDRATE [Concomitant]
     Dosage: 1 G, BID
     Route: 048
     Dates: start: 20100810, end: 20100816
  15. AMOXICILLIN TRIHYDRATE [Concomitant]
     Dosage: 1 G, TID
     Route: 048
     Dates: start: 20100816, end: 20100818
  16. INSULIN LISPRO [Concomitant]
     Indication: DIABETES MELLITUS
     Dosage: UNK
     Route: 058
     Dates: start: 20100720, end: 20100826
  17. PARIET [Concomitant]
     Indication: ULCER
     Dosage: 20 MG, ONCE 3 DAY
     Route: 048
     Dates: start: 20100726, end: 20100827

REACTIONS (2)
  - KIDNEY TRANSPLANT REJECTION [None]
  - RENAL FAILURE ACUTE [None]
